FAERS Safety Report 24806047 (Version 1)
Quarter: 2025Q1

REPORT INFORMATION
  Report Type: Spontaneous
  Country: US (occurrence: US)
  Receive Date: 20250103
  Receipt Date: 20250103
  Transmission Date: 20250409
  Serious: No
  Sender: PFIZER
  Company Number: US-PFIZER INC-PV202400170284

PATIENT
  Age: 70 Year
  Sex: Female

DRUGS (20)
  1. FLAGYL [Suspect]
     Active Substance: METRONIDAZOLE\METRONIDAZOLE HYDROCHLORIDE
  2. TYLENOL [Concomitant]
     Active Substance: ACETAMINOPHEN
  3. VITAMIN D3 [Concomitant]
     Active Substance: CHOLECALCIFEROL
  4. METOPROLOL SUCCINATE [Concomitant]
     Active Substance: METOPROLOL SUCCINATE
  5. AMLODIPINE BESYLATE\BENAZEPRIL HYDROCHLORIDE [Concomitant]
     Active Substance: AMLODIPINE BESYLATE\BENAZEPRIL HYDROCHLORIDE
  6. PREVACID [Concomitant]
     Active Substance: LANSOPRAZOLE
  7. ATORVASTATIN [Concomitant]
     Active Substance: ATORVASTATIN
  8. ASPIRIN [Concomitant]
     Active Substance: ASPIRIN
  9. IRON [Concomitant]
     Active Substance: IRON
  10. VITAMIN C [Concomitant]
     Active Substance: ASCORBIC ACID
  11. MAGNESIUM [Concomitant]
     Active Substance: MAGNESIUM
  12. CALCIUM CARBONATE [Concomitant]
     Active Substance: CALCIUM CARBONATE
  13. CHOLECALCIFEROL [Concomitant]
     Active Substance: CHOLECALCIFEROL
  14. ALENDRONATE [Concomitant]
     Active Substance: ALENDRONATE SODIUM
  15. LACTULOSE [Concomitant]
     Active Substance: LACTULOSE
  16. PHENERGAN [Concomitant]
     Active Substance: PROMETHAZINE HYDROCHLORIDE
  17. ONDANSETRON [Concomitant]
     Active Substance: ONDANSETRON
  18. FLEXERIL [Concomitant]
     Active Substance: CYCLOBENZAPRINE HYDROCHLORIDE
  19. TUMS [Concomitant]
     Active Substance: CALCIUM CARBONATE
  20. NITROFURANTOIN [Concomitant]
     Active Substance: NITROFURANTOIN

REACTIONS (1)
  - Rash [Unknown]
